FAERS Safety Report 18187343 (Version 1)
Quarter: 2020Q3

REPORT INFORMATION
  Report Type: Spontaneous
  Country: US (occurrence: US)
  Receive Date: 20200824
  Receipt Date: 20200824
  Transmission Date: 20201103
  Serious: No
  Sender: FDA-Public Use
  Company Number: US-SHIRE-US202027262

PATIENT
  Age: 39 Year
  Sex: Female

DRUGS (4)
  1. GATTEX [Suspect]
     Active Substance: TEDUGLUTIDE\WATER
     Indication: PRODUCT USED FOR UNKNOWN INDICATION
     Dosage: 0.27 (UNIT UNKNOWN), 1X/DAY:QD
     Route: 058
     Dates: start: 20191002, end: 20200803
  2. GATTEX [Suspect]
     Active Substance: TEDUGLUTIDE\WATER
     Indication: PRODUCT USED FOR UNKNOWN INDICATION
     Dosage: 0.27 (UNIT UNKNOWN), 1X/DAY:QD
     Route: 058
     Dates: start: 20191002, end: 20200803
  3. GATTEX [Suspect]
     Active Substance: TEDUGLUTIDE\WATER
     Indication: PRODUCT USED FOR UNKNOWN INDICATION
     Dosage: 0.27 (UNIT UNKNOWN), 1X/DAY:QD
     Route: 058
     Dates: start: 20191002, end: 20200803
  4. GATTEX [Suspect]
     Active Substance: TEDUGLUTIDE\WATER
     Indication: PRODUCT USED FOR UNKNOWN INDICATION
     Dosage: 0.27 (UNIT UNKNOWN), 1X/DAY:QD
     Route: 058
     Dates: start: 20191002, end: 20200803

REACTIONS (1)
  - Abdominal pain upper [Recovering/Resolving]

NARRATIVE: CASE EVENT DATE: 20200803
